FAERS Safety Report 16783505 (Version 2)
Quarter: 2019Q4

REPORT INFORMATION
  Report Type: Other
  Country: DE (occurrence: DE)
  Receive Date: 20190907
  Receipt Date: 20191107
  Transmission Date: 20200122
  Serious: Yes (Congenital Anomaly, Other)
  Sender: FDA-Public Use
  Company Number: DE-MACLEODS PHARMACEUTICALS US LTD-MAC2019022817

PATIENT

DRUGS (2)
  1. METHYLDOPA. [Concomitant]
     Active Substance: METHYLDOPA
     Indication: PRODUCT USED FOR UNKNOWN INDICATION
     Dosage: 1000 MILLIGRAM, QD
     Route: 064
     Dates: start: 20181027, end: 20181029
  2. VALSARTAN. [Suspect]
     Active Substance: VALSARTAN
     Indication: PRODUCT USED FOR UNKNOWN INDICATION
     Dosage: 80 MILLIGRAM, QD
     Route: 064
     Dates: start: 20180209, end: 20181026

REACTIONS (11)
  - Patent ductus arteriosus [Unknown]
  - Small for dates baby [Recovered/Resolved]
  - Microcephaly [Unknown]
  - Renal failure [Not Recovered/Not Resolved]
  - Pulmonary hypoplasia [Recovered/Resolved]
  - Joint contracture [Recovering/Resolving]
  - Foetal exposure during pregnancy [Unknown]
  - Renal dysplasia [Not Recovered/Not Resolved]
  - Atrial septal defect [Unknown]
  - Potter^s syndrome [Not Recovered/Not Resolved]
  - Respiratory disorder neonatal [Recovered/Resolved]

NARRATIVE: CASE EVENT DATE: 20181029
